FAERS Safety Report 13012133 (Version 3)
Quarter: 2017Q1

REPORT INFORMATION
  Report Type: Report from Study
  Country: BR (occurrence: BR)
  Receive Date: 20161209
  Receipt Date: 20170123
  Transmission Date: 20170428
  Serious: Yes (Other)
  Sender: FDA-Public Use
  Company Number: PHHY2016BR168462

PATIENT
  Sex: Male
  Weight: 79 kg

DRUGS (2)
  1. EXELON PATCH [Suspect]
     Active Substance: RIVASTIGMINE
     Indication: MEMORY IMPAIRMENT
     Dosage: 9.5 MG, QD PATCH 10 (CM2)
     Route: 062
  2. EXELON PATCH [Suspect]
     Active Substance: RIVASTIGMINE
     Dosage: 4.6 MG, UNK PATCH 5 (CM2)
     Route: 062

REACTIONS (6)
  - Speech disorder [Unknown]
  - Agitation [Unknown]
  - Weight decreased [Unknown]
  - Product adhesion issue [Unknown]
  - Cerebrovascular accident [Unknown]
  - Drug ineffective [Unknown]
